FAERS Safety Report 16761407 (Version 1)
Quarter: 2019Q3

REPORT INFORMATION
  Report Type: Spontaneous
  Country: US (occurrence: US)
  Receive Date: 20190830
  Receipt Date: 20190830
  Transmission Date: 20191005
  Serious: Yes (Death, Life-Threatening, Other)
  Sender: FDA-Public Use
  Company Number: US-AMGEN-USASP2019137780

PATIENT

DRUGS (2)
  1. CARFILZOMIB [Suspect]
     Active Substance: CARFILZOMIB
     Indication: PLASMA CELL MYELOMA
     Dosage: UNK
     Route: 065
  2. PANOBINOSTAT [Suspect]
     Active Substance: PANOBINOSTAT
     Indication: PLASMA CELL MYELOMA
     Dosage: UNK
     Route: 065

REACTIONS (100)
  - Anaemia [Unknown]
  - Hypophosphataemia [Unknown]
  - Decreased appetite [Unknown]
  - Hyperkalaemia [Unknown]
  - Blood alkaline phosphatase increased [Unknown]
  - Atrial tachycardia [Unknown]
  - Memory impairment [Unknown]
  - Malnutrition [Unknown]
  - Dyspnoea [Unknown]
  - Oedema peripheral [Unknown]
  - Muscular weakness [Unknown]
  - Thrombocytopenia [Unknown]
  - Blood bilirubin increased [Unknown]
  - Myalgia [Unknown]
  - Pyrexia [Unknown]
  - Haematuria [Unknown]
  - Respiratory disorder [Unknown]
  - Hypernatraemia [Unknown]
  - Weight decreased [Unknown]
  - Mucosal infection [Unknown]
  - Insomnia [Unknown]
  - Hyperuricaemia [Unknown]
  - Neutropenia [Unknown]
  - Acute kidney injury [Fatal]
  - Aspartate aminotransferase increased [Unknown]
  - Angina pectoris [Unknown]
  - Fatigue [Unknown]
  - Agitation [Unknown]
  - Sinus bradycardia [Unknown]
  - Rash maculo-papular [Unknown]
  - Cough [Unknown]
  - Dyspepsia [Unknown]
  - Hypomagnesaemia [Unknown]
  - Anxiety [Unknown]
  - Upper respiratory tract infection [Unknown]
  - Vitreous haemorrhage [Unknown]
  - Nasal congestion [Unknown]
  - Dry eye [Unknown]
  - Eye disorder [Unknown]
  - Hiccups [Unknown]
  - Lethargy [Unknown]
  - Skin infection [Unknown]
  - Fungal infection [Unknown]
  - Photophobia [Unknown]
  - Back pain [Unknown]
  - Oropharyngeal pain [Unknown]
  - Ejection fraction decreased [Unknown]
  - Renal disorder [Unknown]
  - Cardiac disorder [Unknown]
  - Electrocardiogram QT prolonged [Unknown]
  - Vomiting [Unknown]
  - Hypertension [Unknown]
  - Mediastinal disorder [Unknown]
  - Stomatitis [Unknown]
  - Alanine aminotransferase increased [Unknown]
  - Hypotension [Unknown]
  - Peripheral sensory neuropathy [Unknown]
  - Sinus tachycardia [Unknown]
  - Pneumonia parainfluenzae viral [Fatal]
  - Blood creatinine increased [Unknown]
  - Urinary tract disorder [Unknown]
  - Hypermagnesaemia [Unknown]
  - Cardiac failure congestive [Unknown]
  - Skin disorder [Unknown]
  - Chills [Unknown]
  - Hypercalcaemia [Unknown]
  - Paraesthesia [Unknown]
  - Off label use [Unknown]
  - Disease progression [Unknown]
  - Lung infection [Unknown]
  - Hypocalcaemia [Unknown]
  - Left ventricular dysfunction [Unknown]
  - Constipation [Unknown]
  - Lymphopenia [Unknown]
  - Hyponatraemia [Unknown]
  - Abdominal pain [Unknown]
  - Atrial fibrillation [Unknown]
  - Hypoglycaemia [Unknown]
  - Tremor [Unknown]
  - Supraventricular tachycardia [Unknown]
  - Hyperglycaemia [Unknown]
  - Urinary tract infection [Unknown]
  - Syncope [Unknown]
  - Confusional state [Unknown]
  - Diarrhoea [Unknown]
  - Nausea [Unknown]
  - Pulmonary haemorrhage [Unknown]
  - Dehydration [Unknown]
  - Neuropathy peripheral [Unknown]
  - Hypokalaemia [Unknown]
  - Dizziness [Unknown]
  - Gastrooesophageal reflux disease [Unknown]
  - Adverse event [Unknown]
  - Neck pain [Unknown]
  - Lacrimation increased [Unknown]
  - Therapy non-responder [Unknown]
  - Vision blurred [Unknown]
  - Epistaxis [Unknown]
  - Hypoalbuminaemia [Unknown]
  - Headache [Unknown]
